FAERS Safety Report 9789957 (Version 1)
Quarter: 2013Q4

REPORT INFORMATION
  Report Type: Spontaneous
  Country: AU (occurrence: None)
  Receive Date: 20131227
  Receipt Date: 20131227
  Transmission Date: 20140711
  Serious: Yes (Other)
  Sender: FDA-Public Use
  Company Number: 2013000380

PATIENT
  Sex: Male

DRUGS (3)
  1. ACEON [Suspect]
     Indication: PRODUCT USED FOR UNKNOWN INDICATION
  2. DIGOXIN (DIGOXIN) [Concomitant]
  3. WARFARIN SODIUM (WARFARIN SODIUM) [Concomitant]

REACTIONS (4)
  - Amnesia [None]
  - Malaise [None]
  - Angioedema [None]
  - Headache [None]
